FAERS Safety Report 9421146 (Version 1)
Quarter: 2013Q3

REPORT INFORMATION
  Report Type: Report from Study
  Country: GB (occurrence: GB)
  Receive Date: 20130725
  Receipt Date: 20130725
  Transmission Date: 20140515
  Serious: Yes (Hospitalization)
  Sender: FDA-Public Use
  Company Number: PHHY2013GB077013

PATIENT
  Age: 37 Year
  Sex: Female
  Weight: 53 kg

DRUGS (10)
  1. TRAMADOL [Suspect]
     Indication: ARTHRALGIA
     Dates: start: 20130516, end: 20130521
  2. METHOTREXATE [Suspect]
     Dosage: 15 MG, UNK
     Route: 048
     Dates: start: 20120619
  3. METHOTREXATE [Suspect]
     Dosage: 25 MG, UNK
     Route: 048
     Dates: start: 20130515
  4. ETANERCEPT [Suspect]
     Indication: RHEUMATOID ARTHRITIS
     Dosage: 50 MG, UNK
     Route: 058
     Dates: start: 20130515
  5. FOLIC ACID [Concomitant]
     Dosage: 5 MG, FOR SIX DAYS A WEEK
     Route: 048
     Dates: start: 20120620
  6. ETORICOXIB [Concomitant]
     Dates: start: 20120522
  7. OMEPRAZOLE [Concomitant]
     Dates: start: 201202
  8. NORTRIPTYLINE [Concomitant]
     Dates: start: 20120401
  9. CO-CODAMOL [Concomitant]
     Dates: start: 20120201
  10. CHAMPIX [Concomitant]
     Dates: start: 20130128

REACTIONS (3)
  - Viral infection [Recovered/Resolved]
  - Vomiting [Recovered/Resolved]
  - Headache [Recovered/Resolved]
